FAERS Safety Report 10274432 (Version 1)
Quarter: 2014Q3

REPORT INFORMATION
  Report Type: Spontaneous
  Country: US (occurrence: US)
  Receive Date: 20140702
  Receipt Date: 20140702
  Transmission Date: 20150326
  Serious: No
  Sender: FDA-Public Use
  Company Number: US-BAYER-2014-098240

PATIENT
  Sex: Female

DRUGS (1)
  1. SKYLA [Suspect]
     Active Substance: LEVONORGESTREL
     Dosage: 12 MCG/24HR, CONT
     Route: 015

REACTIONS (5)
  - Complication of device insertion [None]
  - Device difficult to use [None]
  - Nervousness [None]
  - Vaginismus [None]
  - Fear [None]
